FAERS Safety Report 9856870 (Version 1)
Quarter: 2014Q1

REPORT INFORMATION
  Report Type: Spontaneous
  Country: US (occurrence: None)
  Receive Date: 20140128
  Receipt Date: 20140128
  Transmission Date: 20141002
  Serious: Yes (Death)
  Sender: FDA-Public Use
  Company Number: 2014AP000503

PATIENT
  Age: 60 Year
  Sex: Male

DRUGS (1)
  1. DILT-XR [Suspect]
     Route: 048

REACTIONS (1)
  - Completed suicide [None]
